FAERS Safety Report 7429452-X (Version None)
Quarter: 2011Q2

REPORT INFORMATION
  Report Type: 
  Country: None (occurrence: None)
  Receive Date: 20110421
  Receipt Date: 20110414
  Transmission Date: 20111010
  Serious: Yes (Hospitalization)
  Sender: FDA-Public Use
  Company Number: US-B.I. PHARMACEUTICALS,INC./RIDGEFIELD-2011-BP-02168BP

PATIENT
  Age: 45 Year
  Sex: Male

DRUGS (9)
  1. BP MED [Concomitant]
     Indication: BLOOD PRESSURE
  2. ASPIRIN [Concomitant]
  3. FLOMAX [Suspect]
     Indication: MICTURITION URGENCY
     Dosage: 0.4 MG
     Dates: start: 20090301, end: 20090301
  4. LOVASTATIN [Concomitant]
  5. LISINOPRIL [Concomitant]
  6. HYDROCHLOROTHIAZIDE [Concomitant]
  7. GLUCOSAMINE CHONDROITIN [Concomitant]
  8. TOPROL-XL [Concomitant]
  9. CELEBREX [Concomitant]

REACTIONS (3)
  - BENIGN INTRACRANIAL HYPERTENSION [None]
  - HEADACHE [None]
  - LOSS OF CONSCIOUSNESS [None]
